FAERS Safety Report 9263046 (Version 4)
Quarter: 2014Q2

REPORT INFORMATION
  Report Type: Spontaneous
  Country: US (occurrence: US)
  Receive Date: 20130430
  Receipt Date: 20140607
  Transmission Date: 20141212
  Serious: Yes (Hospitalization)
  Sender: FDA-Public Use
  Company Number: US-ELI_LILLY_AND_COMPANY-US201304006755

PATIENT
  Age: 75 Year
  Sex: Female

DRUGS (10)
  1. HUMULIN NPH [Suspect]
     Indication: TYPE 2 DIABETES MELLITUS
     Dosage: UNK, UNKNOWN
     Route: 065
     Dates: end: 201210
  2. HUMULIN NPH [Suspect]
     Indication: TYPE 2 DIABETES MELLITUS
     Dosage: UNK UNK, UNKNOWN
     Route: 065
     Dates: start: 201210
  3. HUMULIN NPH [Suspect]
     Dosage: UNK, UNKNOWN
     Route: 065
     Dates: end: 20130911
  4. HUMULIN REGULAR [Suspect]
     Indication: TYPE 2 DIABETES MELLITUS
     Dosage: UNK UNK, UNKNOWN
     Route: 065
     Dates: end: 20130911
  5. LIPITOR [Concomitant]
  6. CLOPIDOGREL [Concomitant]
  7. ASPIRIN [Concomitant]
  8. DIOVAN [Concomitant]
  9. LATANOPROST [Concomitant]
     Dosage: UNK, EACH EVENING
     Route: 065
  10. BRIMONIDINE TARTRATE [Concomitant]

REACTIONS (6)
  - Cerebrovascular accident [Recovered/Resolved with Sequelae]
  - Consciousness fluctuating [Recovered/Resolved]
  - Blood glucose increased [Unknown]
  - Visual impairment [Unknown]
  - Cataract [Unknown]
  - Eye pain [Unknown]
